FAERS Safety Report 9947213 (Version 1)
Quarter: 2014Q1

REPORT INFORMATION
  Report Type: Report from Study
  Country: US (occurrence: US)
  Receive Date: 20140303
  Receipt Date: 20140303
  Transmission Date: 20141002
  Serious: No
  Sender: FDA-Public Use
  Company Number: US-ABBVIE-13P-163-1064099-00

PATIENT
  Age: 81 Year
  Sex: Female

DRUGS (10)
  1. HUMIRA [Suspect]
     Indication: RHEUMATOID ARTHRITIS
     Route: 058
  2. VALSARTAN + HIDROCLOROTIAZIDA [Concomitant]
     Indication: HYPERTENSION
  3. OXYCODONE [Concomitant]
     Indication: PAIN
  4. LOMOTIL [Concomitant]
     Indication: DIARRHOEA
  5. MECLIZINE [Concomitant]
     Indication: DIZZINESS
  6. PROVIGAL [Concomitant]
     Indication: FATIGUE
  7. VITAMIN B12 [Concomitant]
     Indication: PRODUCT USED FOR UNKNOWN INDICATION
  8. FOLIC ACID [Concomitant]
     Indication: PRODUCT USED FOR UNKNOWN INDICATION
     Dosage: 1 MG DAILY
  9. MULTIVITAMIN [Concomitant]
     Indication: SUPPLEMENTATION THERAPY
  10. VITAMINS NOS [Concomitant]
     Indication: SUPPLEMENTATION THERAPY

REACTIONS (1)
  - Urinary tract infection [Not Recovered/Not Resolved]
